FAERS Safety Report 10459189 (Version 1)
Quarter: 2014Q3

REPORT INFORMATION
  Report Type: Spontaneous
  Country: DE (occurrence: DE)
  Receive Date: 20140917
  Receipt Date: 20140917
  Transmission Date: 20150326
  Serious: Yes (Other)
  Sender: FDA-Public Use
  Company Number: PHHY2014DE115024

PATIENT
  Sex: Male

DRUGS (2)
  1. TASIGNA [Suspect]
     Active Substance: NILOTINIB
     Dosage: 300 MG, DAILY
  2. TASIGNA [Suspect]
     Active Substance: NILOTINIB

REACTIONS (4)
  - Infection [Unknown]
  - Orchitis noninfective [Unknown]
  - Bone pain [Unknown]
  - Skin reaction [Unknown]
